FAERS Safety Report 4751420-7 (Version None)
Quarter: 2005Q3

REPORT INFORMATION
  Report Type: 
  Country: None (occurrence: None)
  Receive Date: 20050824
  Receipt Date: 20050809
  Transmission Date: 20060218
  Serious: Yes (Death)
  Sender: FDA-Public Use
  Company Number: 200516269US

PATIENT
  Sex: Male

DRUGS (1)
  1. LOVENOX [Suspect]
     Dosage: DOSE: UNKNOWN

REACTIONS (1)
  - LUNG NEOPLASM MALIGNANT [None]
